FAERS Safety Report 5641647-4 (Version None)
Quarter: 2008Q1

REPORT INFORMATION
  Report Type: 
  Country: None (occurrence: None)
  Receive Date: 20080227
  Receipt Date: 20080111
  Transmission Date: 20080703
  Serious: No
  Sender: FDA-Public Use
  Company Number: A0702578A

PATIENT
  Age: 62 Year
  Sex: Male

DRUGS (1)
  1. NICORETTE (MINT) [Suspect]
     Dates: start: 20080101

REACTIONS (5)
  - CHOKING SENSATION [None]
  - COUGH [None]
  - PARAESTHESIA ORAL [None]
  - RETCHING [None]
  - THROAT IRRITATION [None]
